FAERS Safety Report 7646852-3 (Version None)
Quarter: 2011Q3

REPORT INFORMATION
  Report Type: 
  Country: None (occurrence: None)
  Receive Date: 20110801
  Receipt Date: 20110727
  Transmission Date: 20111222
  Serious: Yes (Other)
  Sender: FDA-Public Use
  Company Number: DE-SANOFI-AVENTIS-2011SA016475

PATIENT
  Age: 73 Year
  Sex: Female
  Weight: 57 kg

DRUGS (11)
  1. HYDROCHLOROTHIAZIDE [Concomitant]
     Route: 048
  2. ISRADIPINE [Concomitant]
     Route: 048
  3. BISOPROLOL FUMARATE [Concomitant]
     Route: 065
  4. ATACAND [Concomitant]
     Route: 048
  5. SIMVASTATIN [Concomitant]
     Route: 048
  6. KALINOR [Concomitant]
     Route: 065
  7. METOPROLOL TARTRATE [Concomitant]
     Indication: ATRIAL FIBRILLATION
     Route: 048
  8. MARCUMAR [Concomitant]
     Indication: ATRIAL FIBRILLATION
     Route: 048
  9. THYRONAJOD [Concomitant]
     Route: 048
  10. MULTAQ [Suspect]
     Indication: ATRIAL FIBRILLATION
     Route: 048
     Dates: start: 20101130, end: 20110301
  11. AZOPT [Concomitant]
     Route: 065

REACTIONS (6)
  - INTERSTITIAL LUNG DISEASE [None]
  - CONDITION AGGRAVATED [None]
  - PULMONARY HYPERTENSION [None]
  - DYSPNOEA [None]
  - PULMONARY FIBROSIS [None]
  - LUNG DISORDER [None]
